FAERS Safety Report 9929990 (Version 1)
Quarter: 2014Q1

REPORT INFORMATION
  Report Type: Spontaneous
  Country: US (occurrence: US)
  Receive Date: 20140227
  Receipt Date: 20140227
  Transmission Date: 20141002
  Serious: No
  Sender: FDA-Public Use
  Company Number: US-AMGEN-USASP2013072131

PATIENT
  Age: 27 Year
  Sex: Male

DRUGS (1)
  1. ENBREL [Suspect]
     Indication: RHEUMATOID ARTHRITIS
     Dosage: 50 MG, WEEKLY
     Route: 065
     Dates: start: 20130801

REACTIONS (3)
  - Musculoskeletal pain [Recovered/Resolved]
  - Back pain [Recovered/Resolved]
  - Muscle tightness [Recovered/Resolved]
